FAERS Safety Report 8230344-7 (Version None)
Quarter: 2012Q1

REPORT INFORMATION
  Report Type: 
  Country: None (occurrence: None)
  Receive Date: 20120322
  Receipt Date: 20120322
  Transmission Date: 20120608
  Serious: Yes (Other)
  Sender: FDA-Public Use
  Company Number: None

PATIENT
  Sex: Female
  Weight: 81.6475 kg

DRUGS (2)
  1. LAMOTRIGINE [Suspect]
     Indication: BIPOLAR DISORDER
     Dosage: 200MG 1 DAILY PO
     Route: 048
     Dates: start: 20100120, end: 20100127
  2. LAMOTRIGINE [Suspect]
     Indication: AFFECTIVE DISORDER
     Dosage: 200MG 1 DAILY PO
     Route: 048
     Dates: start: 20100120, end: 20100127

REACTIONS (3)
  - PRURITUS [None]
  - PAIN [None]
  - DRUG PRESCRIBING ERROR [None]
